FAERS Safety Report 22320792 (Version 1)
Quarter: 2023Q2

REPORT INFORMATION
  Report Type: Report from Study
  Country: US (occurrence: US)
  Receive Date: 20230515
  Receipt Date: 20230515
  Transmission Date: 20230721
  Serious: Yes (Hospitalization, Other)
  Sender: FDA-Public Use
  Company Number: US-MYLANLABS-2023M1048735

PATIENT
  Age: 64 Year
  Sex: Male
  Weight: 95.3 kg

DRUGS (10)
  1. LIPITOR [Suspect]
     Active Substance: ATORVASTATIN CALCIUM
     Indication: Product used for unknown indication
     Dosage: UNK
     Route: 065
  2. JYNARQUE [Suspect]
     Active Substance: TOLVAPTAN
     Indication: Congenital cystic kidney disease
     Dosage: 45 MILLIGRAM, BID
     Route: 048
     Dates: start: 201911, end: 202302
  3. JYNARQUE [Suspect]
     Active Substance: TOLVAPTAN
     Dosage: 15 MILLIGRAM, BID
     Route: 048
     Dates: start: 201911, end: 202302
  4. AUGMENTIN [Concomitant]
     Active Substance: AMOXICILLIN\CLAVULANATE POTASSIUM
     Dosage: UNK
     Route: 065
  5. IMODIUM A-D [Concomitant]
     Active Substance: LOPERAMIDE HYDROCHLORIDE
     Dosage: UNK
     Route: 065
  6. LEVOTHYROXINE [Concomitant]
     Active Substance: LEVOTHYROXINE
     Dosage: UNK
     Route: 065
  7. MORPHINE [Concomitant]
     Active Substance: MORPHINE
     Dosage: UNK
     Route: 065
  8. PANTOPRAZOLE [Concomitant]
     Active Substance: PANTOPRAZOLE
     Dosage: UNK
     Route: 065
  9. TYLENOL [Concomitant]
     Active Substance: ACETAMINOPHEN
     Dosage: UNK
     Route: 065
  10. ZOFRAN [Concomitant]
     Active Substance: ONDANSETRON HYDROCHLORIDE
     Dosage: UNK
     Route: 065

REACTIONS (29)
  - Liver injury [Recovering/Resolving]
  - Bacterial sepsis [Unknown]
  - Hypokalaemia [Unknown]
  - Acute kidney injury [Unknown]
  - Neutropenia [Unknown]
  - Pancreatic atrophy [Unknown]
  - White blood cell count decreased [Not Recovered/Not Resolved]
  - Haemoglobin decreased [Not Recovered/Not Resolved]
  - Haematocrit decreased [Not Recovered/Not Resolved]
  - Platelet count decreased [Unknown]
  - Blood creatinine increased [Unknown]
  - Blood urea increased [Not Recovered/Not Resolved]
  - Blood glucose increased [Recovered/Resolved]
  - Blood calcium decreased [Not Recovered/Not Resolved]
  - Prothrombin time prolonged [Unknown]
  - Liver function test abnormal [Unknown]
  - Globulins increased [Unknown]
  - Splenomegaly [Unknown]
  - Pyrexia [Unknown]
  - Hypotension [Unknown]
  - Malaise [Unknown]
  - Carbon dioxide decreased [Recovered/Resolved]
  - Blood chloride increased [Recovered/Resolved]
  - Metabolic acidosis [Unknown]
  - Hypoperfusion [Unknown]
  - Hyponatraemia [Recovered/Resolved]
  - Aspartate aminotransferase abnormal [Unknown]
  - Heart rate decreased [Unknown]
  - Oxygen saturation decreased [Unknown]

NARRATIVE: CASE EVENT DATE: 20230101
